FAERS Safety Report 20451534 (Version 1)
Quarter: 2022Q1

REPORT INFORMATION
  Report Type: Spontaneous
  Country: US (occurrence: US)
  Receive Date: 20220209
  Receipt Date: 20220209
  Transmission Date: 20220423
  Serious: No
  Sender: FDA-Public Use
  Company Number: US-NOVARTISTESTPH-NVSC2020US334567

PATIENT

DRUGS (1)
  1. PAZEO [Suspect]
     Active Substance: OLOPATADINE HYDROCHLORIDE
     Indication: Product used for unknown indication
     Dosage: UNK
     Route: 047

REACTIONS (1)
  - Vision blurred [Unknown]

NARRATIVE: CASE EVENT DATE: 20201005
